FAERS Safety Report 11091401 (Version 3)
Quarter: 2015Q2

REPORT INFORMATION
  Report Type: Spontaneous
  Country: BR (occurrence: BR)
  Receive Date: 20150505
  Receipt Date: 20150624
  Transmission Date: 20150821
  Serious: Yes (Other)
  Sender: FDA-Public Use
  Company Number: BR-PFIZER INC-2015145852

PATIENT
  Age: 67 Year
  Sex: Female
  Weight: 63 kg

DRUGS (12)
  1. CENTRUM [Concomitant]
     Active Substance: VITAMINS
     Indication: VITAMIN SUPPLEMENTATION
     Dosage: 1 TABLET (UNSPECIFIED DOSE), DAILY
     Dates: start: 2005
  2. COSOPT [Concomitant]
     Active Substance: DORZOLAMIDE HYDROCHLORIDE\TIMOLOL MALEATE
     Indication: INTRAOCULAR PRESSURE TEST
     Dosage: 2 GTT, 2X/DAY
     Dates: start: 2011
  3. OESTROGEL [Concomitant]
     Active Substance: ESTRADIOL
     Indication: HORMONE REPLACEMENT THERAPY
     Dosage: TO USE IN THE ARMS DURING 25 DAYS IN A MONTH
     Dates: start: 1995
  4. OLCADIL [Concomitant]
     Active Substance: CLOXAZOLAM
     Indication: NERVOUSNESS
     Dosage: 0.5 DF, DAILY
     Dates: start: 1995
  5. OMEPRAZOLE. [Concomitant]
     Active Substance: OMEPRAZOLE
     Indication: DYSPEPSIA
     Dosage: 1 DF, DAILY
     Dates: start: 2005
  6. OTRIVINA [Concomitant]
     Active Substance: XYLOMETAZOLINE
     Indication: NASAL DISCOMFORT
     Dosage: 4 GTT, 1X/DAY
  7. HYPERIUM [Concomitant]
     Active Substance: RILMENIDINE PHOSPHATE
     Indication: BLOOD PRESSURE
     Dosage: 1 DF, 1X/DAY
     Dates: start: 1995
  8. RINOSORO [Concomitant]
     Indication: NASAL DISCOMFORT
     Dosage: 4 GTT, 1X/DAY
  9. CITALOR [Suspect]
     Active Substance: ATORVASTATIN
     Indication: BLOOD CHOLESTEROL
     Dosage: 10 MG, 3X/WEEK
     Route: 048
     Dates: start: 2005
  10. VITERSOL D [Concomitant]
     Active Substance: CHOLECALCIFEROL
     Indication: BONE DISORDER
     Dosage: 3 DROPS, DAILY
     Dates: start: 2014
  11. VITERSOL D [Concomitant]
     Active Substance: CHOLECALCIFEROL
     Indication: BLOOD CALCIUM
  12. SPIRULINA [Concomitant]
     Active Substance: SPIRULINA
     Indication: VITAMIN SUPPLEMENTATION
     Dosage: 2 DF, DAILY
     Dates: start: 2012

REACTIONS (8)
  - Intraocular pressure increased [Unknown]
  - Osteoarthritis [Unknown]
  - Ocular vascular disorder [Recovered/Resolved]
  - Inappropriate schedule of drug administration [Unknown]
  - Depression [Unknown]
  - Osteopenia [Unknown]
  - Blood pressure increased [Recovered/Resolved]
  - Tension [Unknown]

NARRATIVE: CASE EVENT DATE: 2009
